FAERS Safety Report 19385011 (Version 1)
Quarter: 2021Q2

REPORT INFORMATION
  Report Type: Spontaneous
  Country: US (occurrence: US)
  Receive Date: 20210607
  Receipt Date: 20210607
  Transmission Date: 20210717
  Serious: No
  Sender: FDA-Public Use
  Company Number: US-PERRIGO-20US012418

PATIENT
  Age: 63 Year
  Sex: Male
  Weight: 92.06 kg

DRUGS (20)
  1. AMLODIPINE                         /00972402/ [Concomitant]
     Active Substance: AMLODIPINE BESYLATE
     Indication: BLOOD PRESSURE MEASUREMENT
     Dosage: 10 MG, UNKNOWN
     Route: 048
  2. CARVEDILOL. [Concomitant]
     Active Substance: CARVEDILOL
     Indication: BLOOD PRESSURE MEASUREMENT
     Dosage: 6.25 MG, BID
     Route: 048
  3. LEVOTHYROXINE. [Concomitant]
     Active Substance: LEVOTHYROXINE
     Indication: THYROID DISORDER
     Dosage: UNK, UNK
     Route: 048
  4. ATORVASTATIN [Concomitant]
     Active Substance: ATORVASTATIN
     Indication: BLOOD CHOLESTEROL
     Dosage: 40 MG, QHS
     Route: 048
  5. NIAVASC [NICOTINIC ACID] [Suspect]
     Active Substance: NIACIN
     Indication: ALOPECIA
     Dosage: 500 MG, NIGHTLY
     Route: 048
     Dates: start: 202008, end: 20200823
  6. CLONAZEPAM. [Concomitant]
     Active Substance: CLONAZEPAM
     Indication: SLEEP DISORDER
     Dosage: UNK, UNK
     Route: 048
  7. OXYCODONE [Concomitant]
     Active Substance: OXYCODONE
     Indication: MIGRAINE
     Dosage: UNK, PRN
     Route: 048
  8. OXYCODONE [Concomitant]
     Active Substance: OXYCODONE
     Indication: ARTHRITIS
  9. IRON [Concomitant]
     Active Substance: IRON
     Indication: ALOPECIA
     Dosage: UNK, UNK
     Route: 048
     Dates: start: 2019, end: 202008
  10. LANTUS [Concomitant]
     Active Substance: INSULIN GLARGINE
     Indication: GLUCOSE TOLERANCE IMPAIRED
     Dosage: 10 UNITS, QHS
     Route: 058
     Dates: start: 202007
  11. HUMALOG [Concomitant]
     Active Substance: INSULIN LISPRO
     Indication: GLUCOSE TOLERANCE IMPAIRED
     Dosage: UNK, UNK
     Route: 058
     Dates: start: 202007
  12. MINOXIDIL. [Suspect]
     Active Substance: MINOXIDIL
     Dosage: 2.5 CAPFULS, QD
     Route: 061
     Dates: start: 202007, end: 20200823
  13. VIT D [Concomitant]
     Active Substance: VITAMIN D NOS
     Indication: SUPPLEMENTATION THERAPY
     Dosage: 5,000 IU, ONCE WEEKLY
     Route: 048
  14. OXYCODONE [Concomitant]
     Active Substance: OXYCODONE
     Indication: BACK PAIN
  15. FINASTERIDE. [Concomitant]
     Active Substance: FINASTERIDE
     Indication: BLOOD TESTOSTERONE
     Dosage: UNK, UNK
     Route: 048
     Dates: start: 20200505, end: 202007
  16. MINOXIDIL. [Suspect]
     Active Substance: MINOXIDIL
     Indication: ALOPECIA
     Dosage: 2 CAPFULS, BID
     Route: 061
     Dates: start: 20200505, end: 202007
  17. OMEPRAZOLE                         /00661202/ [Concomitant]
     Active Substance: OMEPRAZOLE SODIUM
     Indication: NAUSEA
     Dosage: 20 MG, UNKNOWN
     Route: 048
  18. VITAMIN B12 [Concomitant]
     Active Substance: CYANOCOBALAMIN
     Indication: NERVOUSNESS
     Dosage: UNK, UNK
     Route: 065
     Dates: start: 2019, end: 202008
  19. SEROQUEL [Concomitant]
     Active Substance: QUETIAPINE FUMARATE
     Indication: INSOMNIA
     Dosage: UNK, UNK
     Route: 048
     Dates: start: 2019, end: 202008
  20. LOSARTAN. [Concomitant]
     Active Substance: LOSARTAN
     Indication: BLOOD PRESSURE MEASUREMENT
     Dosage: 100 MG, UNKNOWN
     Route: 048

REACTIONS (12)
  - Condition aggravated [Recovered/Resolved]
  - Drug ineffective [Unknown]
  - Off label use [Recovered/Resolved]
  - Skin burning sensation [Recovering/Resolving]
  - Overdose [Recovered/Resolved]
  - Pain [Recovering/Resolving]
  - Paraesthesia [Recovering/Resolving]
  - Hypotrichosis [Not Recovered/Not Resolved]
  - Pruritus [Recovering/Resolving]
  - Inappropriate schedule of product administration [Recovered/Resolved]
  - Product administered at inappropriate site [Recovered/Resolved]
  - Application site pruritus [Recovering/Resolving]

NARRATIVE: CASE EVENT DATE: 202005
